FAERS Safety Report 10188270 (Version 1)
Quarter: 2014Q2

REPORT INFORMATION
  Report Type: Spontaneous
  Country: US (occurrence: US)
  Receive Date: 20140522
  Receipt Date: 20140522
  Transmission Date: 20141212
  Serious: Yes (Hospitalization)
  Sender: FDA-Public Use
  Company Number: PHHY2014US061166

PATIENT
  Age: 38 Year
  Sex: Male

DRUGS (5)
  1. ENTACAPONE [Suspect]
     Indication: PARKINSON^S DISEASE
     Dosage: 200 MG, 5 TIMES A DAY
  2. ENTACAPONE [Suspect]
     Dosage: 200 MG, ONCE DAILY
  3. LEVODOPA+CARBIDOPA [Suspect]
     Indication: PARKINSON^S DISEASE
     Dosage: 1 DF, UNK
  4. LEVODOPA+CARBIDOPA [Suspect]
     Dosage: 2 DF, UNK
  5. RASAGILINE [Suspect]
     Indication: PARKINSON^S DISEASE
     Dosage: 1 MG, UNK

REACTIONS (4)
  - Cerebrovascular accident [Recovered/Resolved]
  - Ballismus [Recovered/Resolved]
  - Drug effect decreased [Recovered/Resolved]
  - Dyskinesia [Recovered/Resolved]
